FAERS Safety Report 7428440-7 (Version None)
Quarter: 2011Q2

REPORT INFORMATION
  Report Type: 
  Country: None (occurrence: None)
  Receive Date: 20110421
  Receipt Date: 20110408
  Transmission Date: 20111010
  Serious: Yes (Other)
  Sender: FDA-Public Use
  Company Number: PHHY2010BR23074

PATIENT
  Sex: Male

DRUGS (1)
  1. DIOVAN AMLO [Suspect]
     Indication: BLOOD PRESSURE
     Dosage: 160 MG VALS AND 5 MG AMLO, UNK
     Route: 048

REACTIONS (3)
  - OEDEMA PERIPHERAL [None]
  - INFARCTION [None]
  - BLOOD PRESSURE INCREASED [None]
